FAERS Safety Report 15750222 (Version 1)
Quarter: 2018Q4

REPORT INFORMATION
  Report Type: Spontaneous
  Country: US (occurrence: US)
  Receive Date: 20181221
  Receipt Date: 20181221
  Transmission Date: 20190205
  Serious: Yes (Hospitalization)
  Sender: FDA-Public Use
  Company Number: US-PFIZER INC-2018520651

PATIENT
  Age: 38 Year
  Sex: Female
  Weight: 61.22 kg

DRUGS (7)
  1. NARDIL [Suspect]
     Active Substance: PHENELZINE SULFATE
     Indication: SUICIDE ATTEMPT
     Dosage: 180 MG, UNK
  2. ELAVIL [Suspect]
     Active Substance: AMITRIPTYLINE HYDROCHLORIDE
     Dosage: 150 MG, DAILY (12 WEEKS)
  3. ACETYLSALICYLIC ACID [Concomitant]
     Active Substance: ASPIRIN
     Indication: SUICIDE ATTEMPT
     Dosage: SMALL AMOUNT
  4. CHLORTRIMETON [Concomitant]
     Active Substance: CHLORPHENIRAMINE MALEATE
     Indication: SUICIDE ATTEMPT
     Dosage: UNK
  5. GLUCOSE [Concomitant]
     Active Substance: DEXTROSE
     Dosage: UNK, GASTRIC LAVAGE
     Route: 042
  6. ELAVIL [Suspect]
     Active Substance: AMITRIPTYLINE HYDROCHLORIDE
     Indication: SUICIDE ATTEMPT
     Dosage: 800 MG, UNK
  7. SALINE [SODIUM CHLORIDE] [Concomitant]
     Active Substance: SODIUM CHLORIDE
     Dosage: UNK
     Route: 042

REACTIONS (6)
  - Toxicity to various agents [Unknown]
  - Depressed level of consciousness [Unknown]
  - Overdose [Unknown]
  - Urinary retention [Unknown]
  - Hyperpyrexia [Unknown]
  - Cardiovascular disorder [Unknown]
